FAERS Safety Report 11468020 (Version 1)
Quarter: 2015Q3

REPORT INFORMATION
  Report Type: Spontaneous
  Country: US (occurrence: US)
  Receive Date: 20150908
  Receipt Date: 20150908
  Transmission Date: 20151125
  Serious: No
  Sender: FDA-Public Use
  Company Number: US-PFIZER INC-2015294915

PATIENT
  Age: 25 Year
  Sex: Female

DRUGS (2)
  1. PRENATAL VITAMINS [Concomitant]
     Active Substance: VITAMINS
     Dosage: UNK
  2. EFFEXOR XR [Suspect]
     Active Substance: VENLAFAXINE HYDROCHLORIDE
     Indication: DEPRESSION
     Dosage: 37.5 MG, SINGLE
     Route: 048
     Dates: start: 20150827, end: 20150827

REACTIONS (11)
  - Burning sensation [Unknown]
  - Abnormal dreams [Unknown]
  - Abdominal discomfort [Unknown]
  - Chills [Unknown]
  - Pruritus [Unknown]
  - Tinnitus [Unknown]
  - Anxiety [Not Recovered/Not Resolved]
  - Paraesthesia [Unknown]
  - Drug withdrawal syndrome [Not Recovered/Not Resolved]
  - Panic attack [Unknown]
  - Dry mouth [Unknown]

NARRATIVE: CASE EVENT DATE: 20150827
